FAERS Safety Report 4518527-0 (Version None)
Quarter: 2004Q4

REPORT INFORMATION
  Report Type: 
  Country: None (occurrence: None)
  Receive Date: 20041201
  Receipt Date: 20041019
  Transmission Date: 20050328
  Serious: Yes (Death, Hospitalization, Other)
  Sender: FDA-Public Use
  Company Number: A-US2004-07336

PATIENT
  Age: 60 Year
  Sex: Female

DRUGS (2)
  1. TRACLEER [Suspect]
     Indication: PULMONARY HYPERTENSION
     Dosage: 62.5 MG, BID, ORAL
     Route: 048
     Dates: start: 20040114, end: 20040830
  2. COUMADIN [Concomitant]

REACTIONS (11)
  - ACIDOSIS [None]
  - ACUTE RESPIRATORY DISTRESS SYNDROME [None]
  - CARDIAC TAMPONADE [None]
  - COMA [None]
  - ISCHAEMIC HEPATITIS [None]
  - NEUROLOGICAL EXAMINATION ABNORMAL [None]
  - PERICARDIAL EFFUSION [None]
  - PURULENT PERICARDITIS [None]
  - RENAL FAILURE ACUTE [None]
  - RHEUMATOID ARTHRITIS [None]
  - SEPSIS [None]
